FAERS Safety Report 6664631-0 (Version None)
Quarter: 2010Q2

REPORT INFORMATION
  Report Type: 
  Country: None (occurrence: None)
  Receive Date: 20100401
  Receipt Date: 20091113
  Transmission Date: 20101027
  Serious: Yes (Hospitalization)
  Sender: FDA-Public Use
  Company Number: PHHY2009TW61023

PATIENT

DRUGS (1)
  1. EXJADE [Suspect]
     Dosage: UNK

REACTIONS (5)
  - HAEMOGLOBIN DECREASED [None]
  - OEDEMA [None]
  - PLATELET COUNT ABNORMAL [None]
  - PYREXIA [None]
  - WHITE BLOOD CELL COUNT DECREASED [None]
